FAERS Safety Report 5051309-2 (Version None)
Quarter: 2006Q3

REPORT INFORMATION
  Report Type: 
  Country: None (occurrence: None)
  Receive Date: 20060710
  Receipt Date: 20060113
  Transmission Date: 20061208
  Serious: Yes (Other)
  Sender: FDA-Public Use
  Company Number: CHPA2006US00900

PATIENT
  Age: 53 Year
  Sex: Female
  Weight: 49 kg

DRUGS (3)
  1. TRANSDERM SCOP [Suspect]
     Indication: PROPHYLAXIS AGAINST MOTION SICKNESS
     Dosage: 1.5 MG FROM 29 - 31 JAN, TRANSDERMAL
     Route: 062
     Dates: start: 20051229, end: 20051231
  2. ALBUTEROL [Concomitant]
  3. QVAR (BECLOMETASONE DIPROPIONATE) [Concomitant]

REACTIONS (6)
  - DRUG WITHDRAWAL SYNDROME [None]
  - HEADACHE [None]
  - MOTION SICKNESS [None]
  - NAUSEA [None]
  - REBOUND EFFECT [None]
  - VOMITING [None]
